FAERS Safety Report 10540666 (Version 2)
Quarter: 2014Q4

REPORT INFORMATION
  Report Type: Spontaneous
  Country: IT (occurrence: IT)
  Receive Date: 20141024
  Receipt Date: 20141203
  Transmission Date: 20150529
  Serious: Yes (Hospitalization)
  Sender: FDA-Public Use
  Company Number: IT-SA-2014SA141966

PATIENT
  Age: 90 Year
  Sex: Female

DRUGS (7)
  1. ZARIVIZ [Suspect]
     Active Substance: CEFOTAXIME SODIUM
     Indication: PYREXIA
     Route: 065
     Dates: start: 20140702, end: 20140702
  2. LEVOPRAID [Concomitant]
     Active Substance: SULPIRIDE
  3. CLEXANE [Concomitant]
     Active Substance: ENOXAPARIN SODIUM
  4. FORTRADOL [Concomitant]
     Active Substance: TRAMADOL HYDROCHLORIDE
  5. BRONCOVALEAS [Concomitant]
     Active Substance: ALBUTEROL
  6. LANSOX [Concomitant]
     Active Substance: LANSOPRAZOLE
  7. LASIX [Concomitant]
     Active Substance: FUROSEMIDE

REACTIONS (2)
  - Abdominal pain [Recovering/Resolving]
  - Diarrhoea [Recovering/Resolving]

NARRATIVE: CASE EVENT DATE: 20140703
